FAERS Safety Report 19641323 (Version 2)
Quarter: 2021Q3

REPORT INFORMATION
  Report Type: Spontaneous
  Country: JP (occurrence: JP)
  Receive Date: 20210729
  Receipt Date: 20210903
  Transmission Date: 20211014
  Serious: Yes (Death)
  Sender: FDA-Public Use
  Company Number: JP-BEH-2021134458

PATIENT
  Age: 60 Year
  Sex: Male

DRUGS (1)
  1. ALBUMINAR?5 [Suspect]
     Active Substance: ALBUMIN HUMAN
     Indication: CARDIAC OPERATION
     Dosage: 250 MILLILITER, TOT
     Route: 065
     Dates: start: 20210724, end: 20210724

REACTIONS (2)
  - Respiratory failure [Fatal]
  - Rash [Recovered/Resolved]

NARRATIVE: CASE EVENT DATE: 20210724
